FAERS Safety Report 9915776 (Version 1)
Quarter: 2014Q1

REPORT INFORMATION
  Report Type: Spontaneous
  Country: US (occurrence: None)
  Receive Date: 20140218
  Receipt Date: 20140218
  Transmission Date: 20141002
  Serious: Yes (Hospitalization, Other)
  Sender: FDA-Public Use
  Company Number: AUR-APL-2014-01662

PATIENT
  Age: 32 Year
  Sex: Male

DRUGS (12)
  1. QUETIAPINE [Suspect]
     Indication: SLEEP DISORDER
     Route: 048
  2. QUETIAPINE [Suspect]
     Indication: MOOD SWINGS
     Route: 048
  3. QUETIAPINE [Suspect]
     Indication: ANXIETY
     Route: 048
  4. MIRTAZAPINE (MIRTAZAPINE) [Suspect]
     Indication: IRRITABILITY
     Dosage: AT NIGHT TIME  (15 MG), UNKNOWN
  5. MIRTAZAPINE (MIRTAZAPINE) [Suspect]
     Indication: SLEEP DISORDER
     Dosage: AT NIGHT TIME  (15 MG), UNKNOWN
  6. MIRTAZAPINE (MIRTAZAPINE) [Suspect]
     Dosage: AT NIGHT TIME  (15 MG), UNKNOWN
  7. VALPROATE SODIUM (VALPROATE SODIUM) [Suspect]
     Indication: IRRITABILITY
     Dosage: 80 MG, 1 D, UNKNOWN
  8. VALPROATE SODIUM (VALPROATE SODIUM) [Suspect]
     Indication: SLEEP DISORDER
     Dosage: 80 MG, 1 D, UNKNOWN
  9. VALPROATE SODIUM (VALPROATE SODIUM) [Suspect]
     Indication: DYSPHORIA
     Dosage: 80 MG, 1 D, UNKNOWN
  10. CLONAZEPAM (CLONAZEPAM) (CLONAZEPAM) [Suspect]
     Indication: IRRITABILITY
     Dosage: AT NIGHT (0.5 MG), UNKNOWN
  11. CLONAZEPAM (CLONAZEPAM) (CLONAZEPAM) [Suspect]
     Indication: SLEEP DISORDER
     Dosage: AT NIGHT (0.5 MG), UNKNOWN
  12. CLONAZEPAM (CLONAZEPAM) (CLONAZEPAM) [Suspect]
     Indication: DYSPHORIA
     Dosage: AT NIGHT (0.5 MG), UNKNOWN

REACTIONS (11)
  - Drug dependence [None]
  - Irritability [None]
  - Dysphoria [None]
  - Anxiety [None]
  - Restlessness [None]
  - Sleep disorder [None]
  - Therapeutic response unexpected [None]
  - Drug withdrawal syndrome [None]
  - Incorrect dose administered [None]
  - Intentional drug misuse [None]
  - Pre-existing condition improved [None]
